FAERS Safety Report 4784304-9 (Version None)
Quarter: 2005Q3

REPORT INFORMATION
  Report Type: 
  Country: None (occurrence: None)
  Receive Date: 20050928
  Receipt Date: 20050912
  Transmission Date: 20060218
  Serious: Yes (Other)
  Sender: FDA-Public Use
  Company Number: 217705

PATIENT
  Age: 35 Year
  Sex: Female
  Weight: 111 kg

DRUGS (1)
  1. RAPTIVA [Suspect]
     Indication: PSORIASIS
     Dosage: 111 MG, 1/WEEK, SUBCUTANEOUS
     Route: 058
     Dates: start: 20040501

REACTIONS (3)
  - ABSCESS [None]
  - MULTIPLE-DRUG RESISTANCE [None]
  - STAPHYLOCOCCAL INFECTION [None]
